FAERS Safety Report 9184706 (Version 2)
Quarter: 2013Q2

REPORT INFORMATION
  Report Type: Report from Study
  Country: CA (occurrence: CA)
  Receive Date: 20130324
  Receipt Date: 20130411
  Transmission Date: 20140414
  Serious: Yes (Disabling, Other)
  Sender: FDA-Public Use
  Company Number: CA-ABBOTT-13P-028-1064847-00

PATIENT
  Age: 72 Year
  Sex: Male
  Weight: 104.42 kg

DRUGS (7)
  1. LUPRON DEPOT [Suspect]
     Indication: PROSTATE CANCER
     Dates: start: 1995
  2. LUPRON DEPOT [Suspect]
  3. PREDNISONE [Suspect]
     Indication: PRODUCT USED FOR UNKNOWN INDICATION
     Dosage: 10 MG DAILY
     Dates: start: 20121128, end: 20121212
  4. SULFASALAZINE [Suspect]
     Indication: ARTHRITIS
     Dates: start: 20121128, end: 20121212
  5. BICALUTAMIDE [Concomitant]
     Indication: PRODUCT USED FOR UNKNOWN INDICATION
     Dates: start: 20110318, end: 201203
  6. FLUTAMIDE [Concomitant]
     Indication: PRODUCT USED FOR UNKNOWN INDICATION
     Route: 048
     Dates: start: 20120629, end: 20120722
  7. FLUTAMIDE [Concomitant]
     Route: 048
     Dates: start: 20120723, end: 20121112

REACTIONS (21)
  - Metastases to bone [Unknown]
  - Diplegia [Unknown]
  - Incorrect dose administered [Unknown]
  - Neuropathy peripheral [Unknown]
  - Weight increased [Unknown]
  - Hypertension [Unknown]
  - Activities of daily living impaired [Unknown]
  - Sensory loss [Unknown]
  - Arthritis [Unknown]
  - Hypoaesthesia [Unknown]
  - Neuropathy peripheral [Unknown]
  - Metastases to bone [Unknown]
  - Cauda equina syndrome [Unknown]
  - Hormone-refractory prostate cancer [Unknown]
  - Prostate cancer recurrent [Unknown]
  - Prostate cancer recurrent [Unknown]
  - Fall [Unknown]
  - Hypoaesthesia [Unknown]
  - Sciatica [Unknown]
  - Arthropathy [Unknown]
  - Paralysis [Not Recovered/Not Resolved]
